FAERS Safety Report 5725315-6 (Version None)
Quarter: 2008Q2

REPORT INFORMATION
  Report Type: 
  Country: None (occurrence: None)
  Receive Date: 20080430
  Receipt Date: 20080420
  Transmission Date: 20081010
  Serious: Yes (Other)
  Sender: FDA-Public Use
  Company Number: CHPA2008US06970

PATIENT
  Age: 74 Year
  Sex: Male

DRUGS (1)
  1. MYOFLEX ANALGESIC CREME (NCH)(TRIETHANOLAMINE SALICYLATE) CREAM [Suspect]
     Indication: ARTHRITIS
     Dosage: QD, TOPICAL
     Route: 061
     Dates: start: 20080401

REACTIONS (1)
  - FAECES DISCOLOURED [None]
